FAERS Safety Report 7623211-0 (Version None)
Quarter: 2011Q3

REPORT INFORMATION
  Report Type: 
  Country: None (occurrence: None)
  Receive Date: 20110720
  Receipt Date: 20110715
  Transmission Date: 20111222
  Serious: Yes (Death, Hospitalization)
  Sender: FDA-Public Use
  Company Number: PHHY2010AT65141

PATIENT
  Age: 68 Year
  Sex: Female
  Weight: 66 kg

DRUGS (3)
  1. ITERIUM [Suspect]
     Indication: HYPERTENSION
     Dosage: 1 MG, DAILY
     Route: 048
  2. AFINITOR [Suspect]
     Indication: METASTATIC RENAL CELL CARCINOMA
     Dosage: 10 MG, DAILY
     Route: 048
     Dates: start: 20100904
  3. THYREX [Suspect]
     Indication: HYPOTHYROIDISM
     Dosage: 50 UG, UNK
     Route: 048
     Dates: start: 20100825

REACTIONS (8)
  - CARDIOMYOPATHY [None]
  - ELECTROCARDIOGRAM ABNORMAL [None]
  - VENTRICULAR DYSFUNCTION [None]
  - RENAL FAILURE [None]
  - CARDIAC ENZYMES INCREASED [None]
  - TRICUSPID VALVE INCOMPETENCE [None]
  - LEFT VENTRICULAR HYPERTROPHY [None]
  - LEFT ATRIAL DILATATION [None]
